FAERS Safety Report 24790772 (Version 3)
Quarter: 2025Q2

REPORT INFORMATION
  Report Type: Spontaneous
  Country: FR (occurrence: FR)
  Receive Date: 20241230
  Receipt Date: 20250408
  Transmission Date: 20250717
  Serious: Yes (Life-Threatening, Hospitalization)
  Sender: MYLAN
  Company Number: FR-DEAQVIDAP-20240119

PATIENT
  Age: 65 Year
  Sex: Male
  Weight: 99 kg

DRUGS (52)
  1. PREDNISONE [Suspect]
     Active Substance: PREDNISONE
     Indication: Hormone-refractory prostate cancer
     Dosage: 5 MILLIGRAM, QD
     Route: 048
     Dates: start: 20240906, end: 20241203
  2. PREDNISONE [Suspect]
     Active Substance: PREDNISONE
     Dosage: 5 MILLIGRAM, QD
     Dates: start: 20240906, end: 20241203
  3. PREDNISONE [Suspect]
     Active Substance: PREDNISONE
     Dosage: 5 MILLIGRAM, QD
     Dates: start: 20240906, end: 20241203
  4. PREDNISONE [Suspect]
     Active Substance: PREDNISONE
     Dosage: 5 MILLIGRAM, QD
     Route: 048
     Dates: start: 20240906, end: 20241203
  5. PREDNISONE [Suspect]
     Active Substance: PREDNISONE
     Dosage: 5 MILLIGRAM, QD
     Route: 048
     Dates: start: 20250124
  6. PREDNISONE [Suspect]
     Active Substance: PREDNISONE
     Dosage: 5 MILLIGRAM, QD
     Dates: start: 20250124
  7. PREDNISONE [Suspect]
     Active Substance: PREDNISONE
     Dosage: 5 MILLIGRAM, QD
     Dates: start: 20250124
  8. PREDNISONE [Suspect]
     Active Substance: PREDNISONE
     Dosage: 5 MILLIGRAM, QD
     Route: 048
     Dates: start: 20250124
  9. DOCETAXEL [Suspect]
     Active Substance: DOCETAXEL
     Indication: Hormone-refractory prostate cancer
     Dosage: 75 MILLIGRAM/SQ. METER, Q3W
     Dates: start: 20240906, end: 20240906
  10. DOCETAXEL [Suspect]
     Active Substance: DOCETAXEL
     Dosage: 75 MILLIGRAM/SQ. METER, Q3W
     Route: 042
     Dates: start: 20240906, end: 20240906
  11. DOCETAXEL [Suspect]
     Active Substance: DOCETAXEL
     Dosage: 75 MILLIGRAM/SQ. METER, Q3W
     Route: 042
     Dates: start: 20240906, end: 20240906
  12. DOCETAXEL [Suspect]
     Active Substance: DOCETAXEL
     Dosage: 75 MILLIGRAM/SQ. METER, Q3W
     Dates: start: 20240906, end: 20240906
  13. DOCETAXEL [Suspect]
     Active Substance: DOCETAXEL
     Dosage: 75 MILLIGRAM/SQ. METER, Q3W
     Dates: start: 20241115, end: 20241115
  14. DOCETAXEL [Suspect]
     Active Substance: DOCETAXEL
     Dosage: 75 MILLIGRAM/SQ. METER, Q3W
     Route: 042
     Dates: start: 20241115, end: 20241115
  15. DOCETAXEL [Suspect]
     Active Substance: DOCETAXEL
     Dosage: 75 MILLIGRAM/SQ. METER, Q3W
     Dates: start: 20241115, end: 20241115
  16. DOCETAXEL [Suspect]
     Active Substance: DOCETAXEL
     Dosage: 75 MILLIGRAM/SQ. METER, Q3W
     Route: 042
     Dates: start: 20241115, end: 20241115
  17. DOCETAXEL [Suspect]
     Active Substance: DOCETAXEL
     Dosage: 75 MILLIGRAM/SQ. METER, Q3W
     Route: 042
     Dates: start: 20250124
  18. DOCETAXEL [Suspect]
     Active Substance: DOCETAXEL
     Dosage: 75 MILLIGRAM/SQ. METER, Q3W
     Route: 042
     Dates: start: 20250124
  19. DOCETAXEL [Suspect]
     Active Substance: DOCETAXEL
     Dosage: 75 MILLIGRAM/SQ. METER, Q3W
     Dates: start: 20250124
  20. DOCETAXEL [Suspect]
     Active Substance: DOCETAXEL
     Dosage: 75 MILLIGRAM/SQ. METER, Q3W
     Dates: start: 20250124
  21. LEVOTHYROXINE [Concomitant]
     Active Substance: LEVOTHYROXINE
  22. LEVOTHYROXINE [Concomitant]
     Active Substance: LEVOTHYROXINE
     Route: 065
  23. LEVOTHYROXINE [Concomitant]
     Active Substance: LEVOTHYROXINE
     Route: 065
  24. LEVOTHYROXINE [Concomitant]
     Active Substance: LEVOTHYROXINE
  25. ALBUTEROL [Concomitant]
     Active Substance: ALBUTEROL
  26. ALBUTEROL [Concomitant]
     Active Substance: ALBUTEROL
     Route: 065
  27. ALBUTEROL [Concomitant]
     Active Substance: ALBUTEROL
     Route: 065
  28. ALBUTEROL [Concomitant]
     Active Substance: ALBUTEROL
  29. FILGRASTIM [Concomitant]
     Active Substance: FILGRASTIM
  30. FILGRASTIM [Concomitant]
     Active Substance: FILGRASTIM
     Route: 065
  31. FILGRASTIM [Concomitant]
     Active Substance: FILGRASTIM
     Route: 065
  32. FILGRASTIM [Concomitant]
     Active Substance: FILGRASTIM
  33. ELIQUIS [Concomitant]
     Active Substance: APIXABAN
  34. ELIQUIS [Concomitant]
     Active Substance: APIXABAN
     Route: 065
  35. ELIQUIS [Concomitant]
     Active Substance: APIXABAN
     Route: 065
  36. ELIQUIS [Concomitant]
     Active Substance: APIXABAN
  37. EXFORGE [Concomitant]
     Active Substance: AMLODIPINE BESYLATE\VALSARTAN
  38. EXFORGE [Concomitant]
     Active Substance: AMLODIPINE BESYLATE\VALSARTAN
     Route: 065
  39. EXFORGE [Concomitant]
     Active Substance: AMLODIPINE BESYLATE\VALSARTAN
     Route: 065
  40. EXFORGE [Concomitant]
     Active Substance: AMLODIPINE BESYLATE\VALSARTAN
  41. FLECAINIDE [Concomitant]
     Active Substance: FLECAINIDE
  42. FLECAINIDE [Concomitant]
     Active Substance: FLECAINIDE
     Route: 065
  43. FLECAINIDE [Concomitant]
     Active Substance: FLECAINIDE
     Route: 065
  44. FLECAINIDE [Concomitant]
     Active Substance: FLECAINIDE
  45. ROSUVASTATIN [Concomitant]
     Active Substance: ROSUVASTATIN
  46. ROSUVASTATIN [Concomitant]
     Active Substance: ROSUVASTATIN
     Route: 065
  47. ROSUVASTATIN [Concomitant]
     Active Substance: ROSUVASTATIN
     Route: 065
  48. ROSUVASTATIN [Concomitant]
     Active Substance: ROSUVASTATIN
  49. URAPIDIL [Concomitant]
     Active Substance: URAPIDIL
  50. URAPIDIL [Concomitant]
     Active Substance: URAPIDIL
     Route: 065
  51. URAPIDIL [Concomitant]
     Active Substance: URAPIDIL
     Route: 065
  52. URAPIDIL [Concomitant]
     Active Substance: URAPIDIL

REACTIONS (1)
  - Oesophagitis [Recovered/Resolved]

NARRATIVE: CASE EVENT DATE: 20241203
